FAERS Safety Report 9169879 (Version 2)
Quarter: 2013Q2

REPORT INFORMATION
  Report Type: Spontaneous
  Country: US (occurrence: US)
  Receive Date: 20130319
  Receipt Date: 20130404
  Transmission Date: 20140414
  Serious: No
  Sender: FDA-Public Use
  Company Number: US-009507513-1303USA008510

PATIENT
  Age: 74 Year
  Sex: Male

DRUGS (8)
  1. DULERA [Suspect]
     Indication: COCCIDIOIDOMYCOSIS
     Dosage: 150/50 MCG,2 PUFFS PER DAY
     Route: 055
     Dates: start: 201303
  2. LANSOPRAZOLE [Concomitant]
  3. LEVOTHYROXINE SODIUM [Concomitant]
  4. LISINOPRIL [Concomitant]
  5. COREG [Concomitant]
  6. ARGININE [Concomitant]
  7. CELEBREX [Concomitant]
  8. SIMVASTATIN TABLETS, USP [Concomitant]

REACTIONS (1)
  - Toothache [Unknown]
